FAERS Safety Report 4447005-2 (Version None)
Quarter: 2004Q3

REPORT INFORMATION
  Report Type: 
  Country: None (occurrence: None)
  Receive Date: 20040812
  Receipt Date: 20040504
  Transmission Date: 20050211
  Serious: No
  Sender: FDA-Public Use
  Company Number: USA040464324

PATIENT
  Age: 58 Year
  Sex: Male
  Weight: 91 kg

DRUGS (6)
  1. CIALIS [Suspect]
     Indication: ERECTILE DYSFUNCTION
     Dosage: 40 MG OTHER
     Dates: start: 20040101
  2. ATENOLOL [Concomitant]
  3. LITHIUM [Concomitant]
  4. LISINOPRIL [Concomitant]
  5. LOVASTATIN [Concomitant]
  6. ASPIRIN [Concomitant]

REACTIONS (7)
  - CHILLS [None]
  - FLUSHING [None]
  - HEADACHE [None]
  - INTENTIONAL OVERDOSE [None]
  - PALPITATIONS [None]
  - THERAPEUTIC RESPONSE DECREASED [None]
  - VISION BLURRED [None]
